FAERS Safety Report 4524866-X (Version None)
Quarter: 2004Q4

REPORT INFORMATION
  Report Type: 
  Country: None (occurrence: None)
  Receive Date: 20041213
  Receipt Date: 20040820
  Transmission Date: 20050328
  Serious: Yes (Other)
  Sender: FDA-Public Use
  Company Number: DK-SOLVAY-00304002880

PATIENT
  Age: 35 Year
  Sex: Male

DRUGS (1)
  1. TESTOSTERONE [Suspect]
     Indication: KLINEFELTER'S SYNDROME
     Dosage: DAILY DOSE: UNK. FREQUENCY:UNKNOWN
     Route: 062
     Dates: start: 20040615, end: 20040101

REACTIONS (2)
  - AMBLYOPIA [None]
  - VISUAL ACUITY REDUCED [None]
